FAERS Safety Report 25368307 (Version 1)
Quarter: 2025Q2

REPORT INFORMATION
  Report Type: Spontaneous
  Country: ES (occurrence: ES)
  Receive Date: 20250528
  Receipt Date: 20250528
  Transmission Date: 20250716
  Serious: Yes (Other)
  Sender: BAUSCH AND LOMB
  Company Number: None

PATIENT
  Age: 67 Year
  Sex: Female
  Weight: 77 kg

DRUGS (2)
  1. HYDROCORTISONE [Interacting]
     Active Substance: HYDROCORTISONE
     Indication: Respiratory tract infection
     Route: 042
     Dates: start: 20250317, end: 20250317
  2. METHYLPREDNISOLONE [Interacting]
     Active Substance: METHYLPREDNISOLONE
     Indication: Respiratory tract infection
     Route: 048
     Dates: start: 20250317, end: 20250318

REACTIONS (2)
  - Hyperglycaemia [Recovered/Resolved]
  - Condition aggravated [Recovered/Resolved]

NARRATIVE: CASE EVENT DATE: 20250317
